FAERS Safety Report 9400302 (Version 1)
Quarter: 2013Q3

REPORT INFORMATION
  Report Type: Report from Study
  Country: PW (occurrence: PW)
  Receive Date: 20130715
  Receipt Date: 20130715
  Transmission Date: 20140515
  Serious: Yes (Hospitalization)
  Sender: FDA-Public Use
  Company Number: PW-SANOFI-AVENTIS-2013SA070146

PATIENT
  Age: 73 Year
  Sex: Male

DRUGS (4)
  1. PLAVIX [Suspect]
     Indication: ANTIPLATELET THERAPY
     Route: 065
     Dates: start: 20100914
  2. PLAVIX [Suspect]
     Indication: ANTIPLATELET THERAPY
     Route: 065
     Dates: start: 20111014
  3. ASPIRIN [Suspect]
     Indication: ANTIPLATELET THERAPY
     Route: 065
  4. DRUG ELUTING STENT [Suspect]
     Indication: ANGINA PECTORIS

REACTIONS (1)
  - Angina unstable [Recovered/Resolved]
